FAERS Safety Report 8294090-6 (Version None)
Quarter: 2012Q2

REPORT INFORMATION
  Report Type: 
  Country: None (occurrence: None)
  Receive Date: 20120418
  Receipt Date: 20120411
  Transmission Date: 20120825
  Serious: Yes (Other)
  Sender: FDA-Public Use
  Company Number: US-UCBSA-055113

PATIENT
  Age: 64 Year
  Sex: Female

DRUGS (2)
  1. VIMPAT [Suspect]
     Dosage: REDUCED DOSE
     Dates: start: 20120330
  2. VIMPAT [Suspect]
     Dates: start: 20120309, end: 20120301

REACTIONS (6)
  - HYPERTENSION [None]
  - TREMOR [None]
  - NAUSEA [None]
  - DRUG WITHDRAWAL SYNDROME [None]
  - MALAISE [None]
  - COLD SWEAT [None]
